FAERS Safety Report 13603441 (Version 1)
Quarter: 2017Q2

REPORT INFORMATION
  Report Type: Spontaneous
  Country: US (occurrence: US)
  Receive Date: 20170601
  Receipt Date: 20170601
  Transmission Date: 20170912
  Serious: No
  Sender: FDA-Public Use
  Company Number: US-OTSUKA-2016_017831

PATIENT
  Age: 88 Year
  Sex: Female

DRUGS (2)
  1. SAMSCA [Suspect]
     Indication: PRODUCT USED FOR UNKNOWN INDICATION
     Dosage: HALF TABLET OF 15 MG, QOD
     Route: 048
  2. LASIX [Concomitant]
     Indication: CARDIAC FAILURE CONGESTIVE
     Dosage: 30 MG, QD
     Route: 065

REACTIONS (9)
  - Inappropriate schedule of drug administration [Unknown]
  - Wrong technique in product usage process [Unknown]
  - Dysphonia [Not Recovered/Not Resolved]
  - Dry throat [Unknown]
  - Prescribed underdose [Unknown]
  - Dry eye [Not Recovered/Not Resolved]
  - Dehydration [Unknown]
  - Dysphagia [Unknown]
  - Thirst [Unknown]

NARRATIVE: CASE EVENT DATE: 20160719
